FAERS Safety Report 19778943 (Version 5)
Quarter: 2021Q4

REPORT INFORMATION
  Report Type: Spontaneous
  Country: JP (occurrence: JP)
  Receive Date: 20210902
  Receipt Date: 20211203
  Transmission Date: 20220303
  Serious: Yes (Hospitalization, Other)
  Sender: FDA-Public Use
  Company Number: JP-BRISTOL-MYERS SQUIBB COMPANY-BMS-2021-087709

PATIENT
  Age: 77 Year
  Sex: Male

DRUGS (3)
  1. YERVOY [Suspect]
     Active Substance: IPILIMUMAB
     Indication: Pleural mesothelioma malignant
     Dosage: UNK, ONE TIME DOSE
     Route: 065
     Dates: start: 20210618, end: 20210618
  2. OPDIVO [Suspect]
     Active Substance: NIVOLUMAB
     Indication: Pleural mesothelioma malignant
     Dosage: UNK, ONE TIME DOSE
     Route: 065
     Dates: start: 20210618, end: 20210618
  3. OPDIVO [Suspect]
     Active Substance: NIVOLUMAB
     Dosage: UNK, ONE TIME DOSE
     Route: 065
     Dates: start: 20210709, end: 20210709

REACTIONS (4)
  - Pyrexia [Recovered/Resolved]
  - Altered state of consciousness [Recovered/Resolved]
  - Blood pressure decreased [Recovered/Resolved]
  - Asthenia [Recovered/Resolved]

NARRATIVE: CASE EVENT DATE: 20210628
